FAERS Safety Report 7727699-6 (Version None)
Quarter: 2011Q3

REPORT INFORMATION
  Report Type: 
  Country: None (occurrence: None)
  Receive Date: 20110902
  Receipt Date: 20110824
  Transmission Date: 20111222
  Serious: Yes (Hospitalization, Other)
  Sender: FDA-Public Use
  Company Number: US-ASTRAZENECA-2010SE51860

PATIENT
  Age: 49 Year
  Sex: Male

DRUGS (8)
  1. LISINOPRIL [Concomitant]
     Route: 048
  2. LIPITOR [Concomitant]
  3. NEXIUM [Suspect]
     Route: 048
  4. ASPIRIN [Concomitant]
  5. COREG [Concomitant]
  6. NICODERM [Concomitant]
  7. NITROGLYCERIN [Concomitant]
     Dosage: AS NEEDED
     Route: 060
  8. PRILOSEC OTC [Suspect]
     Route: 048

REACTIONS (13)
  - ELECTROCUTION [None]
  - HYPERLIPIDAEMIA [None]
  - ACUTE MYOCARDIAL INFARCTION [None]
  - DRUG DOSE OMISSION [None]
  - TOBACCO ABUSE [None]
  - DISTURBANCE IN ATTENTION [None]
  - DRUG INEFFECTIVE [None]
  - PERFORATED ULCER [None]
  - MYOCARDIAL INFARCTION [None]
  - DYSPEPSIA [None]
  - CORONARY ARTERY DISEASE [None]
  - HYPERTENSION [None]
  - PAIN [None]
